FAERS Safety Report 6665197-1 (Version None)
Quarter: 2010Q2

REPORT INFORMATION
  Report Type: 
  Country: None (occurrence: None)
  Receive Date: 20100402
  Receipt Date: 20100304
  Transmission Date: 20101027
  Serious: No
  Sender: FDA-Public Use
  Company Number: US-JNJFOC-20100303567

PATIENT
  Sex: Female

DRUGS (2)
  1. INVEGA [Suspect]
     Indication: SCHIZOPHRENIA, PARANOID TYPE
     Route: 048
  2. RISPERDAL [Concomitant]
     Indication: SCHIZOPHRENIA, PARANOID TYPE

REACTIONS (2)
  - HUNGER [None]
  - WEIGHT INCREASED [None]
